FAERS Safety Report 8396224-1 (Version None)
Quarter: 2012Q2

REPORT INFORMATION
  Report Type: 
  Country: None (occurrence: None)
  Receive Date: 20120530
  Receipt Date: 20120524
  Transmission Date: 20120825
  Serious: Yes (Other)
  Sender: FDA-Public Use
  Company Number: PHHY2012BR045439

PATIENT
  Age: 60 Year
  Sex: Female

DRUGS (2)
  1. DIOVAN [Suspect]
     Dosage: 160 MG,
  2. DIOVAN HCT [Suspect]
     Indication: HYPERTENSION
     Dosage: 1 DF(160 MG VALS / 25MG HCTZ), DAILY

REACTIONS (6)
  - DRUG DISPENSING ERROR [None]
  - BLOOD PRESSURE FLUCTUATION [None]
  - SPINAL PAIN [None]
  - MALAISE [None]
  - NEPHROLITHIASIS [None]
  - HEADACHE [None]
